FAERS Safety Report 10818381 (Version 2)
Quarter: 2015Q1

REPORT INFORMATION
  Report Type: Spontaneous
  Country: JP (occurrence: JP)
  Receive Date: 20150218
  Receipt Date: 20150306
  Transmission Date: 20150721
  Serious: No
  Sender: FDA-Public Use
  Company Number: JP-BAYER-2015-024782

PATIENT

DRUGS (1)
  1. BAYASPIRIN [Suspect]
     Active Substance: ASPIRIN
     Dosage: UNK
     Route: 048

REACTIONS (1)
  - Platelet count decreased [Recovered/Resolved]
